FAERS Safety Report 8758835 (Version 1)
Quarter: 2012Q4

REPORT INFORMATION
  Report Type: 
  Country: CA (occurrence: CA)
  Receive Date: 20120829
  Receipt Date: 20120829
  Transmission Date: 20130627
  Serious: Yes (Other)
  Sender: FDA-Public Use
  Company Number: PHHY2012CA073971

PATIENT
  Age: 66 Year
  Sex: Male

DRUGS (6)
  1. TERBINAFINE [Suspect]
     Indication: ONYCHOMYCOSIS
     Dosage: 250 mg, per day
     Route: 048
     Dates: start: 19960719, end: 19960821
  2. PREDNISONE [Concomitant]
     Dosage: 60 mg, per day
     Dates: start: 199605
  3. PREDNISONE [Concomitant]
     Dosage: 30 mg, per day
  4. PREDNISONE [Concomitant]
     Dosage: 60 mg, per day
  5. DOXAZOSIN MESILATE [Concomitant]
     Indication: HYPERTENSION
     Dosage: 4 mg, per day
  6. ASPIRIN [Concomitant]
     Dosage: 325 mg, per day

REACTIONS (7)
  - Drug reaction with eosinophilia and systemic symptoms [Recovered/Resolved]
  - Lichenoid keratosis [Unknown]
  - Lymphadenopathy [Recovering/Resolving]
  - Rash macular [Recovering/Resolving]
  - Eczema [Unknown]
  - Pyrexia [Recovered/Resolved]
  - Hepatic function abnormal [Recovered/Resolved]
